FAERS Safety Report 7790351-5 (Version None)
Quarter: 2011Q3

REPORT INFORMATION
  Report Type: 
  Country: None (occurrence: None)
  Receive Date: 20110930
  Receipt Date: 20110914
  Transmission Date: 20111222
  Serious: Yes (Other)
  Sender: FDA-Public Use
  Company Number: US-SANOFI-AVENTIS-2011SA063536

PATIENT
  Sex: Female

DRUGS (5)
  1. OXYCONTIN [Concomitant]
  2. AMBIEN [Concomitant]
  3. SOLOSTAR [Suspect]
  4. LANTUS [Suspect]
     Dosage: DOSE:100 UNIT(S)
     Route: 058
  5. HUMALOG [Concomitant]

REACTIONS (3)
  - HYPERGLYCAEMIA [None]
  - DEVICE MALFUNCTION [None]
  - INJECTION SITE HAEMATOMA [None]
